FAERS Safety Report 19309383 (Version 1)
Quarter: 2021Q2

REPORT INFORMATION
  Report Type: Spontaneous
  Country: US (occurrence: US)
  Receive Date: 20210526
  Receipt Date: 20210526
  Transmission Date: 20210717
  Serious: No
  Sender: FDA-Public Use
  Company Number: US-PFIZER INC-2021221528

PATIENT
  Age: 80 Year
  Sex: Male
  Weight: 66.21 kg

DRUGS (6)
  1. ATORVASTATIN [Concomitant]
     Active Substance: ATORVASTATIN
     Dosage: 10 MG, 1X/DAY
     Route: 048
  2. AMLODIPINE BESILATE [Concomitant]
     Active Substance: AMLODIPINE BESYLATE
     Dosage: 10 MG, 1X/DAY
     Route: 048
  3. DOXAZOSIN MESILATE [Suspect]
     Active Substance: DOXAZOSIN MESYLATE
     Indication: BLOOD PRESSURE MANAGEMENT
     Dosage: 1 MG, DAILY (NIGHTLY) (EVERY EVENING)
     Route: 048
     Dates: start: 202002
  4. TORSEMIDE. [Concomitant]
     Active Substance: TORSEMIDE
     Dosage: 5 MG, 1X/DAY
     Route: 048
  5. BENAZEPRIL [Concomitant]
     Active Substance: BENAZEPRIL HYDROCHLORIDE
     Dosage: 40 MG, 1X/DAY
     Route: 048
  6. DOXAZOSIN MESILATE [Suspect]
     Active Substance: DOXAZOSIN MESYLATE
     Indication: BENIGN PROSTATIC HYPERPLASIA

REACTIONS (1)
  - Hypotension [Unknown]

NARRATIVE: CASE EVENT DATE: 202002
